FAERS Safety Report 10025638 (Version 2)
Quarter: 2014Q2

REPORT INFORMATION
  Report Type: Spontaneous
  Country: US (occurrence: None)
  Receive Date: 20140314
  Receipt Date: 20140402
  Transmission Date: 20141212
  Serious: Yes (Other)
  Sender: FDA-Public Use
  Company Number: ADR-2014-00407

PATIENT
  Age: 54 Year
  Sex: Female

DRUGS (3)
  1. BACLOFEN [Suspect]
     Indication: PAIN
  2. DILAUDID [Suspect]
  3. MORPHINE [Suspect]

REACTIONS (2)
  - Drug withdrawal syndrome [None]
  - Ill-defined disorder [None]
